FAERS Safety Report 9150096 (Version 2)
Quarter: 2013Q3

REPORT INFORMATION
  Report Type: Spontaneous
  Country: US (occurrence: US)
  Receive Date: 20130308
  Receipt Date: 20130902
  Transmission Date: 20140515
  Serious: Yes (Hospitalization, Other)
  Sender: FDA-Public Use
  Company Number: US-ROCHE-1097342

PATIENT
  Age: 39 Year
  Sex: Male
  Weight: 79.45 kg

DRUGS (2)
  1. ACCUTANE [Suspect]
     Indication: ACNE
     Route: 048
     Dates: start: 19990301, end: 19990811
  2. ACCUTANE [Suspect]
     Route: 048
     Dates: start: 19990913

REACTIONS (9)
  - Colitis ulcerative [Unknown]
  - Inflammatory bowel disease [Unknown]
  - Large intestine polyp [Unknown]
  - Rectal polyp [Unknown]
  - Dry skin [Unknown]
  - Arthralgia [Unknown]
  - Joint stiffness [Unknown]
  - Alopecia [Unknown]
  - Cheilitis [Unknown]
